FAERS Safety Report 7647525-3 (Version None)
Quarter: 2011Q3

REPORT INFORMATION
  Report Type: 
  Country: None (occurrence: None)
  Receive Date: 20110801
  Receipt Date: 20110725
  Transmission Date: 20111222
  Serious: Yes (Hospitalization)
  Sender: FDA-Public Use
  Company Number: US-GLAXOSMITHKLINE-A0939128A

PATIENT
  Age: 81 Year
  Sex: Female

DRUGS (7)
  1. MELPHALAN HYDROCHLORIDE [Suspect]
     Indication: MULTIPLE MYELOMA
     Route: 065
  2. THALIDOMIDE [Suspect]
     Indication: MULTIPLE MYELOMA
     Dosage: 100MG PER DAY
     Route: 048
     Dates: start: 20110502, end: 20110527
  3. PREDNISONE [Concomitant]
     Indication: MULTIPLE MYELOMA
     Route: 048
  4. SYNTHROID [Concomitant]
     Indication: THYROID DISORDER
  5. LOTREL [Concomitant]
     Indication: HYPERTENSION
  6. ASPIRIN [Concomitant]
     Indication: MULTIPLE MYELOMA
  7. CRESTOR [Concomitant]
     Indication: BLOOD CHOLESTEROL INCREASED
     Route: 048

REACTIONS (5)
  - PLATELET COUNT DECREASED [None]
  - NEUTROPENIA [None]
  - DRUG INTOLERANCE [None]
  - BONE MARROW FAILURE [None]
  - HAEMOGLOBIN DECREASED [None]
